FAERS Safety Report 9837814 (Version 1)
Quarter: 2013Q4

REPORT INFORMATION
  Report Type: Spontaneous
  Country: US (occurrence: None)
  Receive Date: 20131205
  Receipt Date: 20131205
  Transmission Date: 20140711
  Serious: No
  Sender: FDA-Public Use
  Company Number: 163-POMAL-13074710

PATIENT
  Age: 58 Year
  Sex: Female
  Weight: 61.24 kg

DRUGS (8)
  1. POMALYST (POMALIDOMIDE) (4 MILLIGRAM, CAPSULES) [Suspect]
     Indication: PLASMA CELL MYELOMA
     Dosage: 4 MG, 1 IN 1 D, PO 07/23/2013 UNKNOWN
     Route: 048
     Dates: start: 20130723
  2. BENADRYL [Suspect]
     Indication: PRURITUS
     Dosage: UNK  / /2013 - UNKNOWN
     Dates: start: 2013
  3. PROTONIX [Concomitant]
  4. LOPRESSOR (METOPROLOL TARTRATE) [Concomitant]
  5. PRILOSEC (OMEPRAZOLE) [Concomitant]
  6. VITAMIN B6 (PYRDOXINE HYDROCHLORIDE) [Concomitant]
  7. ASPIRIN (ACETYLSALICYLIC ACID) [Concomitant]
  8. AMBER (CEFIXIME) [Concomitant]

REACTIONS (6)
  - Somnolence [None]
  - Pruritus [None]
  - Muscle spasms [None]
  - Diarrhoea [None]
  - Constipation [None]
  - Fatigue [None]
